FAERS Safety Report 8040044-4 (Version None)
Quarter: 2012Q1

REPORT INFORMATION
  Report Type: 
  Country: None (occurrence: None)
  Receive Date: 20120111
  Receipt Date: 20111221
  Transmission Date: 20120608
  Serious: No
  Sender: FDA-Public Use
  Company Number: US-AMGEN-USASP2011051543

PATIENT
  Age: 52 Year
  Sex: Male
  Weight: 93.878 kg

DRUGS (5)
  1. IBUPROFEN (ADVIL) [Concomitant]
     Dosage: 2 TABS TID
     Route: 048
  2. ENBREL [Suspect]
     Indication: RHEUMATOID ARTHRITIS
     Dosage: 50 MG, QWK
     Route: 058
     Dates: start: 20030601
  3. IBUPROFEN [Concomitant]
     Indication: OSTEOARTHRITIS
     Dosage: 600 MG, TID
  4. ENBREL [Suspect]
     Indication: PSORIATIC ARTHROPATHY
  5. ENBREL [Suspect]
     Indication: PSORIASIS

REACTIONS (5)
  - BACK PAIN [None]
  - INTERVERTEBRAL DISC DEGENERATION [None]
  - ACCIDENT AT WORK [None]
  - MUSCLE INJURY [None]
  - OSTEOARTHRITIS [None]
